FAERS Safety Report 19011924 (Version 1)
Quarter: 2021Q1

REPORT INFORMATION
  Report Type: Spontaneous
  Country: US (occurrence: US)
  Receive Date: 20210316
  Receipt Date: 20210316
  Transmission Date: 20210420
  Serious: Yes (Life-Threatening, Hospitalization, Disabling, Other)
  Sender: FDA-Public Use
  Company Number: None

PATIENT
  Age: 34 Year
  Sex: Female
  Weight: 70.56 kg

DRUGS (3)
  1. ADDERALL [Concomitant]
     Active Substance: AMPHETAMINE ASPARTATE\AMPHETAMINE SULFATE\DEXTROAMPHETAMINE SACCHARATE\DEXTROAMPHETAMINE SULFATE
  2. ATIVAN [Suspect]
     Active Substance: LORAZEPAM
     Indication: PERSISTENT GENITAL AROUSAL DISORDER
     Dosage: ?          QUANTITY:1 TABLET(S);?
     Route: 048
     Dates: start: 20200801, end: 20210222
  3. MULTIVITAMIN [Concomitant]
     Active Substance: VITAMINS

REACTIONS (11)
  - Neurogenic shock [None]
  - Cluster headache [None]
  - Withdrawal syndrome [None]
  - Liver injury [None]
  - Acute kidney injury [None]
  - Abdominal pain upper [None]
  - Derealisation [None]
  - Disorientation [None]
  - Neuralgia [None]
  - Tinnitus [None]
  - Pancreatitis [None]

NARRATIVE: CASE EVENT DATE: 20210226
